FAERS Safety Report 5797680-5 (Version None)
Quarter: 2008Q2

REPORT INFORMATION
  Report Type: 
  Country: None (occurrence: None)
  Receive Date: 20080618
  Receipt Date: 20070521
  Transmission Date: 20081010
  Serious: Yes (Other)
  Sender: FDA-Public Use
  Company Number: 200713824US

PATIENT
  Age: 92 Year

DRUGS (5)
  1. LANTUS [Suspect]
     Indication: TYPE 2 DIABETES MELLITUS
     Dosage: 10 U QPM
  2. LEVOTHYROXINE SODIUM (LEVOXYL) [Concomitant]
  3. COREG [Concomitant]
  4. LIPITOR [Concomitant]
  5. ACETYLSALICYLIC ACID SRT [Concomitant]

REACTIONS (1)
  - HYPERGLYCAEMIA [None]
